FAERS Safety Report 5182891-2 (Version None)
Quarter: 2006Q4

REPORT INFORMATION
  Report Type: 
  Country: None (occurrence: None)
  Receive Date: 20061220
  Receipt Date: 20051128
  Transmission Date: 20070319
  Serious: No
  Sender: FDA-Public Use
  Company Number: US-GLAXOSMITHKLINE-A0583825A

PATIENT
  Age: 75 Year
  Sex: Male

DRUGS (8)
  1. NICODERM CQ [Suspect]
     Dates: start: 20051024
  2. K-DUR 10 [Concomitant]
  3. HYTRIN [Concomitant]
  4. DILANTIN [Concomitant]
  5. MULTI-VITAMIN [Concomitant]
  6. PEPCID [Concomitant]
  7. FOLIC ACID [Concomitant]
  8. SENNA [Concomitant]

REACTIONS (6)
  - BALANCE DISORDER [None]
  - CONFUSIONAL STATE [None]
  - DISORIENTATION [None]
  - FALL [None]
  - PRURITUS [None]
  - RASH [None]
